FAERS Safety Report 11992069 (Version 1)
Quarter: 2016Q1

REPORT INFORMATION
  Report Type: Spontaneous
  Country: US (occurrence: US)
  Receive Date: 20160203
  Receipt Date: 20160203
  Transmission Date: 20160526
  Serious: No
  Sender: FDA-Public Use
  Company Number: US-JNJFOC-20151207941

PATIENT
  Age: 80 Year
  Sex: Female
  Weight: 43.09 kg

DRUGS (2)
  1. TYLENOL 8 HR ARTHRITIS PAIN [Suspect]
     Active Substance: ACETAMINOPHEN
     Route: 048
  2. TYLENOL 8 HR ARTHRITIS PAIN [Suspect]
     Active Substance: ACETAMINOPHEN
     Indication: ARTHRITIS
     Dosage: ONCE
     Route: 048
     Dates: start: 20151208, end: 20151208

REACTIONS (2)
  - Wrong technique in product usage process [Unknown]
  - Product size issue [Unknown]
